FAERS Safety Report 5216489-4 (Version None)
Quarter: 2006Q4

REPORT INFORMATION
  Report Type: 
  Country: None (occurrence: None)
  Receive Date: 20061129
  Receipt Date: 20040715
  Transmission Date: 20070319
  Serious: Yes (Hospitalization)
  Sender: FDA-Public Use
  Company Number: 2004UW11038

PATIENT
  Age: 88 Year
  Weight: 73.4827 kg

DRUGS (9)
  1. FASLODEX [Suspect]
     Indication: BREAST CANCER
     Dosage: 250 MG Q4WK IM
     Route: 030
     Dates: start: 20030908
  2. CIPRO [Concomitant]
  3. LASIX [Concomitant]
  4. NAPROSYN [Concomitant]
  5. TRIMETHOPRIM [Concomitant]
  6. ATIVAN [Concomitant]
  7. PAXIL [Concomitant]
  8. PREVACID [Concomitant]
  9. QUININE [Concomitant]

REACTIONS (2)
  - DEEP VEIN THROMBOSIS [None]
  - PULMONARY EMBOLISM [None]
